FAERS Safety Report 6770378-2 (Version None)
Quarter: 2010Q2

REPORT INFORMATION
  Report Type: 
  Country: None (occurrence: None)
  Receive Date: 20100615
  Receipt Date: 20100607
  Transmission Date: 20101027
  Serious: Yes (Other)
  Sender: FDA-Public Use
  Company Number: JP-PFIZER INC-2010071123

PATIENT
  Sex: Female

DRUGS (6)
  1. DOXAZOSIN MESYLATE [Suspect]
     Dosage: 1 MG, DAILY
  2. MICONAZOLE NITRATE [Concomitant]
     Dosage: UNK
     Route: 067
  3. UBRETID [Concomitant]
     Dosage: 5 MG, 1X/DAY
     Route: 048
  4. MICARDIS HCT [Concomitant]
     Dosage: UNK
     Route: 048
  5. GASTER [Concomitant]
     Dosage: UNK
     Route: 048
  6. SEPAMIT [Concomitant]
     Dosage: UNK
     Route: 048

REACTIONS (1)
  - CHROMATURIA [None]
